FAERS Safety Report 9505923 (Version 1)
Quarter: 2013Q1

REPORT INFORMATION
  Report Type: Spontaneous
  Country: US (occurrence: None)
  Receive Date: 20130212
  Receipt Date: 20130212
  Transmission Date: 20140127
  Serious: Yes (Other)
  Sender: FDA-Public Use
  Company Number: 2012SCPR004356

PATIENT
  Age: 53 Year
  Sex: Female

DRUGS (1)
  1. BUPROPION HCL [Suspect]
     Indication: DEPRESSION
     Route: 048
     Dates: start: 20120403, end: 201204

REACTIONS (4)
  - Depression [None]
  - Medication residue present [None]
  - Drug ineffective [None]
  - Product quality issue [None]
